FAERS Safety Report 9186429 (Version 2)
Quarter: 2013Q2

REPORT INFORMATION
  Report Type: Spontaneous
  Country: US (occurrence: None)
  Receive Date: 20130321
  Receipt Date: 20130515
  Transmission Date: 20140414
  Serious: Yes (Death, Hospitalization)
  Sender: FDA-Public Use
  Company Number: UTC-030272

PATIENT
  Age: 72 Year
  Sex: Female
  Weight: 65.64 kg

DRUGS (2)
  1. TYVASO [Suspect]
     Indication: PULMONARY ARTERIAL HYPERTENSION
     Dosage: (18 MCG,4 IN 1 D)
     Route: 055
     Dates: start: 20130308, end: 20130309
  2. REVATIO (SILDENAFIL CITRATE) (UNKNOWN) (SILDENAFIL) [Concomitant]

REACTIONS (1)
  - Dyspnoea [None]
